FAERS Safety Report 5131741-9 (Version None)
Quarter: 2006Q4

REPORT INFORMATION
  Report Type: 
  Country: None (occurrence: None)
  Receive Date: 20061013
  Receipt Date: 20061003
  Transmission Date: 20070319
  Serious: Yes (Life-Threatening, Hospitalization)
  Sender: FDA-Public Use
  Company Number: HQWYE872210OCT06

PATIENT
  Age: 38 Year
  Sex: Female

DRUGS (4)
  1. ADVIL [Suspect]
     Indication: FATIGUE
     Dosage: ORAL
     Route: 048
     Dates: start: 20060816
  2. ADVIL [Suspect]
     Indication: PHARYNGITIS
     Dosage: ORAL
     Route: 048
     Dates: start: 20060816
  3. UNKNOWN (UNKNOWN, ) [Suspect]
     Indication: WEIGHT DECREASED
     Dosage: ORAL
     Route: 048
     Dates: start: 20060803
  4. ACETAMINOPHEN [Concomitant]

REACTIONS (24)
  - ALANINE AMINOTRANSFERASE INCREASED [None]
  - ARTHRITIS [None]
  - BETA HAEMOLYTIC STREPTOCOCCAL INFECTION [None]
  - BLOOD ALKALINE PHOSPHATASE INCREASED [None]
  - BLOOD BICARBONATE DECREASED [None]
  - BLOOD CREATINE PHOSPHOKINASE INCREASED [None]
  - BLOOD CREATININE INCREASED [None]
  - BLOOD LACTATE DEHYDROGENASE INCREASED [None]
  - CONDITION AGGRAVATED [None]
  - DISEASE RECURRENCE [None]
  - GAMMA-GLUTAMYLTRANSFERASE INCREASED [None]
  - HAEMOGLOBIN DECREASED [None]
  - HYPOKALAEMIA [None]
  - INFLAMMATION [None]
  - LIVER DISORDER [None]
  - MENINGITIS BACTERIAL [None]
  - MYOCARDITIS [None]
  - PLATELET COUNT DECREASED [None]
  - PLATELET COUNT INCREASED [None]
  - PURULENT DISCHARGE [None]
  - RETICULOCYTE COUNT ABNORMAL [None]
  - STREPTOCOCCAL SEPSIS [None]
  - TRANSAMINASES INCREASED [None]
  - TROPONIN INCREASED [None]
